FAERS Safety Report 12587144 (Version 1)
Quarter: 2016Q3

REPORT INFORMATION
  Report Type: Report from Study
  Country: US (occurrence: US)
  Receive Date: 20160725
  Receipt Date: 20160725
  Transmission Date: 20161109
  Serious: Yes (Hospitalization)
  Sender: FDA-Public Use
  Company Number: US-VERTEX PHARMACEUTICALS-2016-000218

PATIENT
  Age: 14 Year
  Sex: Female

DRUGS (1)
  1. ORKAMBI [Suspect]
     Active Substance: IVACAFTOR\LUMACAFTOR
     Indication: CYSTIC FIBROSIS
     Dosage: UNK
     Route: 048
     Dates: start: 20151112

REACTIONS (6)
  - Pulmonary function test decreased [Recovering/Resolving]
  - Amenorrhoea [Unknown]
  - Abdominal pain [Unknown]
  - Polymenorrhoea [Unknown]
  - Decreased appetite [Unknown]
  - Dehydration [None]

NARRATIVE: CASE EVENT DATE: 201511
